FAERS Safety Report 6053360-2 (Version None)
Quarter: 2009Q1

REPORT INFORMATION
  Report Type: 
  Country: None (occurrence: None)
  Receive Date: 20090122
  Receipt Date: 20090109
  Transmission Date: 20090719
  Serious: Yes (Hospitalization)
  Sender: FDA-Public Use
  Company Number: 107#03#2009-00052

PATIENT
  Age: 70 Year
  Sex: Male

DRUGS (15)
  1. CARVEDILOL           (TABLETS) (CARVEDILOL) [Suspect]
     Indication: HYPERTENSION
     Dosage: 12.5 MG
     Route: 048
  2. DIGITOXIN (TABLETS) (DIGITOXIN) [Suspect]
     Indication: CARDIAC FAILURE
     Dosage: 0.07 MG
     Route: 048
     Dates: start: 20080625, end: 20080720
  3. ACETOLYT (SODIUM CITRATE, CALCIUM CITRATE) [Suspect]
     Indication: ACIDOSIS
     Dosage: 2.5 G
     Route: 048
     Dates: end: 20080720
  4. ALLOPURINOL (TABLETS) (ALLOPURINOL) [Suspect]
     Indication: HYPERURICAEMIA
     Dosage: 50 MG
     Route: 048
  5. ACETYLSALICYLIC ACID SRT [Suspect]
     Indication: PROPHYLAXIS
     Dosage: 100 MG
     Route: 048
     Dates: end: 20000101
  6. DIOVANNE      (TABLETS) (VALSARTAN) [Suspect]
     Indication: HYPERTENSION
     Dosage: 160 MG
     Route: 048
  7. EBRANTIL        (TABLETS) (URAPIDIL) [Suspect]
     Indication: HYPERTENSION
     Dosage: 60 MG TWO TIMES DAILY
     Route: 048
  8. EINSALPHA       (TABLETS) (ALFACALCIDOL) [Suspect]
     Indication: HYPERPARATHYROIDISM
     Dosage: 0.25 UG
     Route: 048
     Dates: start: 20080520
  9. FLUVASTATIN SODIUM [Suspect]
     Indication: HYPERCHOLESTEROLAEMIA
     Dosage: 20 MG
     Route: 048
  10. PANTOPRAZOLE SODIUM [Suspect]
     Indication: HELICOBACTER GASTRITIS
     Dosage: 40 MG TWO TIMES DAILY
     Route: 048
  11. PLAVIX [Suspect]
     Indication: PROPHYLAXIS
     Dosage: 75 MG
     Route: 048
     Dates: start: 20060401, end: 20080720
  12. TOREM/GFR/             (TORASEMIDE) [Suspect]
     Indication: HYPERTENSION
     Dosage: 20 MG THREE TIMES DAILY
     Route: 048
  13. XIPAMIDE             (XIPAMIDE) [Suspect]
     Indication: HYPERTENSION
     Dosage: 20 MG
     Route: 048
     Dates: start: 20080625
  14. MOXONIDINE                     (MOXONIDINE) [Concomitant]
  15. NEORECORMON               (EPOETIN BETA) [Concomitant]

REACTIONS (11)
  - ANAEMIA [None]
  - BLOOD CREATININE INCREASED [None]
  - BLOOD IRON DECREASED [None]
  - BLOOD UREA INCREASED [None]
  - DRUG LEVEL INCREASED [None]
  - GAMMA-GLUTAMYLTRANSFERASE INCREASED [None]
  - GENERAL PHYSICAL CONDITION ABNORMAL [None]
  - INTERNATIONAL NORMALISED RATIO INCREASED [None]
  - MALAISE [None]
  - NAUSEA [None]
  - RENAL DISORDER [None]
